FAERS Safety Report 20333445 (Version 1)
Quarter: 2022Q1

REPORT INFORMATION
  Report Type: Spontaneous
  Country: DE (occurrence: DE)
  Receive Date: 20220113
  Receipt Date: 20220113
  Transmission Date: 20220423
  Serious: Yes (Hospitalization, Other)
  Sender: FDA-Public Use
  Company Number: DE-Merck Healthcare KGaA-9276607

PATIENT
  Age: 83 Year
  Sex: Female

DRUGS (3)
  1. EUTHYROX [Suspect]
     Active Substance: LEVOTHYROXINE SODIUM
     Indication: Autoimmune thyroiditis
  2. IRBESARTAN [Concomitant]
     Active Substance: IRBESARTAN
     Indication: Product used for unknown indication
  3. NITRENDIPINE [Concomitant]
     Active Substance: NITRENDIPINE
     Indication: Product used for unknown indication

REACTIONS (3)
  - Hypertensive crisis [Unknown]
  - Blood thyroid stimulating hormone increased [Unknown]
  - Drug ineffective [Unknown]
